FAERS Safety Report 13986095 (Version 1)
Quarter: 2017Q3

REPORT INFORMATION
  Report Type: Spontaneous
  Country: US (occurrence: US)
  Receive Date: 20170919
  Receipt Date: 20170919
  Transmission Date: 20171128
  Serious: Yes (Other)
  Sender: FDA-Public Use
  Company Number: None

PATIENT
  Age: 70 Year
  Sex: Female

DRUGS (1)
  1. BUPROP 12 SR [Suspect]
     Active Substance: BUPROPION
     Indication: DEPRESSION
     Route: 048
     Dates: start: 20170612, end: 20170826

REACTIONS (4)
  - Tinnitus [None]
  - Hypoacusis [None]
  - Alopecia [None]
  - Vision blurred [None]

NARRATIVE: CASE EVENT DATE: 20170824
